FAERS Safety Report 13059755 (Version 2)
Quarter: 2017Q1

REPORT INFORMATION
  Report Type: Spontaneous
  Country: US (occurrence: US)
  Receive Date: 20161223
  Receipt Date: 20170105
  Transmission Date: 20170428
  Serious: Yes (Hospitalization, Other)
  Sender: FDA-Public Use
  Company Number: US-ELI_LILLY_AND_COMPANY-US201612004715

PATIENT
  Age: 70 Year
  Sex: Male
  Weight: 84.35 kg

DRUGS (7)
  1. ADCIRCA [Suspect]
     Active Substance: TADALAFIL
     Dosage: 80 MG, QD
     Route: 065
     Dates: start: 20161107
  2. XARELTO [Concomitant]
     Active Substance: RIVAROXABAN
  3. ALBUTEROL                          /00139501/ [Concomitant]
     Active Substance: ALBUTEROL
  4. SIMVASTATIN. [Concomitant]
     Active Substance: SIMVASTATIN
  5. ADCIRCA [Suspect]
     Active Substance: TADALAFIL
     Indication: PRODUCT USED FOR UNKNOWN INDICATION
     Dosage: 40 MG, QD
     Route: 065
  6. OXYGEN. [Concomitant]
     Active Substance: OXYGEN
  7. AMBRISENTAN [Suspect]
     Active Substance: AMBRISENTAN
     Indication: PULMONARY HYPERTENSION
     Dosage: 5 MG, QD
     Route: 065

REACTIONS (4)
  - Aortic stenosis [Unknown]
  - Accidental overdose [Recovered/Resolved]
  - Pulmonary embolism [Not Recovered/Not Resolved]
  - Cor pulmonale acute [Unknown]

NARRATIVE: CASE EVENT DATE: 20161107
